FAERS Safety Report 22354126 (Version 1)
Quarter: 2023Q2

REPORT INFORMATION
  Report Type: Spontaneous
  Country: US (occurrence: US)
  Receive Date: 20230523
  Receipt Date: 20230523
  Transmission Date: 20230722
  Serious: No
  Sender: FDA-Public Use
  Company Number: US-SA-SAC20230518001195

PATIENT
  Age: 17 Year
  Sex: Male
  Weight: 61 kg

DRUGS (1)
  1. DUPIXENT [Suspect]
     Active Substance: DUPILUMAB
     Dosage: UNK UNK, 1X
     Route: 058
     Dates: start: 2023, end: 2023

REACTIONS (3)
  - Skin exfoliation [Unknown]
  - Skin haemorrhage [Unknown]
  - Skin fissures [Unknown]

NARRATIVE: CASE EVENT DATE: 20230501
